FAERS Safety Report 17318619 (Version 1)
Quarter: 2020Q1

REPORT INFORMATION
  Report Type: Spontaneous
  Country: US (occurrence: US)
  Receive Date: 20200124
  Receipt Date: 20200124
  Transmission Date: 20200409
  Serious: No
  Sender: FDA-Public Use
  Company Number: US-TEVA-2020-US-1176121

PATIENT
  Sex: Female

DRUGS (2)
  1. CLONAZEPAM TEVA [Suspect]
     Active Substance: CLONAZEPAM
     Indication: PANIC ATTACK
     Dosage: .5 MILLIGRAM DAILY; 1 TABLET EACH DAY
     Route: 065
     Dates: start: 20200109
  2. CLONAZEPAM TEVA [Suspect]
     Active Substance: CLONAZEPAM
     Indication: ANXIETY

REACTIONS (8)
  - Nausea [Unknown]
  - Dizziness [Unknown]
  - Fatigue [Unknown]
  - Malaise [Unknown]
  - Confusional state [Unknown]
  - Nervousness [Unknown]
  - Anxiety [Unknown]
  - Drug ineffective [Unknown]

NARRATIVE: CASE EVENT DATE: 20200110
